FAERS Safety Report 10548502 (Version 1)
Quarter: 2014Q4

REPORT INFORMATION
  Report Type: Spontaneous
  Country: US (occurrence: None)
  Receive Date: 20141024
  Receipt Date: 20141024
  Transmission Date: 20150529
  Serious: Yes (Hospitalization)
  Sender: FDA-Public Use
  Company Number: FK201404404

PATIENT
  Age: 64 Year
  Sex: Female

DRUGS (2)
  1. CARBOPLATIN. [Concomitant]
     Active Substance: CARBOPLATIN
  2. PACLITAXEL. [Suspect]
     Active Substance: PACLITAXEL
     Indication: OVARIAN CANCER
     Dosage: FOR SIX CYCLES

REACTIONS (10)
  - Scleroderma [None]
  - Oesophageal motility disorder [None]
  - Alanine aminotransferase increased [None]
  - Blood creatine phosphokinase increased [None]
  - Gastrooesophageal reflux disease [None]
  - Raynaud^s phenomenon [None]
  - Myositis [None]
  - Aspartate aminotransferase increased [None]
  - Muscular weakness [None]
  - Red blood cell sedimentation rate increased [None]
